FAERS Safety Report 7198470-1 (Version None)
Quarter: 2010Q4

REPORT INFORMATION
  Report Type: 
  Country: None (occurrence: None)
  Receive Date: 20101214
  Receipt Date: 20101208
  Transmission Date: 20110411
  Serious: Yes (Death)
  Sender: FDA-Public Use
  Company Number: 023456

PATIENT
  Age: 67 Year
  Sex: Male

DRUGS (3)
  1. NEUPRO [Suspect]
  2. L-DOPA [Concomitant]
  3. CARBAMAZEPINE [Concomitant]

REACTIONS (1)
  - PNEUMONIA [None]
